FAERS Safety Report 7641411-0 (Version None)
Quarter: 2011Q3

REPORT INFORMATION
  Report Type: 
  Country: None (occurrence: None)
  Receive Date: 20110728
  Receipt Date: 20110726
  Transmission Date: 20111222
  Serious: Yes (Other)
  Sender: FDA-Public Use
  Company Number: JP-PFIZER INC-2011168976

PATIENT
  Age: 69 Year
  Weight: 35 kg

DRUGS (1)
  1. HALCION [Suspect]
     Dosage: 0.25 MG, 4X/DAY
     Route: 048

REACTIONS (1)
  - SUICIDE ATTEMPT [None]
